FAERS Safety Report 7718418-8 (Version None)
Quarter: 2011Q3

REPORT INFORMATION
  Report Type: 
  Country: None (occurrence: None)
  Receive Date: 20110830
  Receipt Date: 20110826
  Transmission Date: 20111222
  Serious: Yes (Other)
  Sender: FDA-Public Use
  Company Number: US-PFIZER INC-2011107772

PATIENT
  Sex: Female

DRUGS (3)
  1. PANTOPRAZOLE [Suspect]
     Indication: ULCER
  2. PANTOPRAZOLE [Suspect]
     Indication: GASTROOESOPHAGEAL REFLUX DISEASE
     Dosage: 40 MG, 1X/DAY
     Route: 048
     Dates: start: 20110512
  3. PANTOPRAZOLE [Suspect]
     Indication: HELICOBACTER TEST POSITIVE

REACTIONS (6)
  - ABDOMINAL DISCOMFORT [None]
  - PRURITUS [None]
  - GASTROOESOPHAGEAL REFLUX DISEASE [None]
  - RASH [None]
  - PNEUMONIA ASPIRATION [None]
  - ABDOMINAL PAIN UPPER [None]
